FAERS Safety Report 5525839-0 (Version None)
Quarter: 2007Q4

REPORT INFORMATION
  Report Type: 
  Country: None (occurrence: None)
  Receive Date: 20071126
  Receipt Date: 20071114
  Transmission Date: 20080405
  Serious: Yes (Death, Other)
  Sender: FDA-Public Use
  Company Number: FR-PFIZER INC-2007088522

PATIENT
  Sex: Female
  Weight: 100 kg

DRUGS (15)
  1. ZYVOX [Suspect]
     Indication: INFECTION
     Route: 042
     Dates: start: 20071005, end: 20071016
  2. FORTUM [Concomitant]
  3. TAZOCILLINE [Concomitant]
  4. PARACETAMOL [Concomitant]
  5. TRIFLUCAN [Concomitant]
  6. FONZYLANE [Concomitant]
  7. NEURONTIN [Concomitant]
  8. HEPARIN CALCIUM [Concomitant]
  9. NOREPINEPHRINE [Concomitant]
  10. KETAMINE HYDROCHLORIDE [Concomitant]
  11. TOBRAMYCIN [Concomitant]
  12. MORPHINE SULFATE [Concomitant]
  13. MIDAZOLAM HCL [Concomitant]
  14. ATARAX [Concomitant]
  15. INSULIN [Concomitant]

REACTIONS (3)
  - CHOLESTASIS [None]
  - LACTIC ACIDOSIS [None]
  - SEPTIC SHOCK [None]
